FAERS Safety Report 9342274 (Version 2)
Quarter: 2013Q3

REPORT INFORMATION
  Report Type: Spontaneous
  Country: US (occurrence: US)
  Receive Date: 20130611
  Receipt Date: 20130704
  Transmission Date: 20140515
  Serious: Yes (Other)
  Sender: FDA-Public Use
  Company Number: US-PFIZER INC-2013176055

PATIENT
  Age: 54 Year
  Sex: Female
  Weight: 71 kg

DRUGS (10)
  1. LYRICA [Suspect]
     Indication: FIBROMYALGIA
     Dosage: 100 MG, 3X/DAY
     Route: 048
     Dates: start: 2011, end: 2013
  2. LYRICA [Suspect]
     Dosage: 100 MG, 1X/DAY
     Route: 048
     Dates: start: 2013, end: 2013
  3. OMEPRAZOLE [Concomitant]
     Dosage: 20 MG, 1X/DAY
  4. LEVOTHYROXINE [Concomitant]
     Dosage: 150 UG, UNK
  5. AMLODIPINE [Concomitant]
     Dosage: 10 MG, 1X/DAY
  6. LOPRESSOR [Concomitant]
     Dosage: UNK
  7. LOSARTAN [Concomitant]
     Dosage: 50 MG, UNK
  8. ASPIRIN [Concomitant]
     Dosage: UNK, 1X/DAY
  9. TRAZODONE [Concomitant]
     Dosage: UNK, 1X/DAY
  10. INSULIN [Concomitant]
     Indication: DIABETES MELLITUS
     Dosage: 70/30, 2X/DAY

REACTIONS (3)
  - Wrist fracture [Unknown]
  - Arthralgia [Unknown]
  - Blood test abnormal [Unknown]
